FAERS Safety Report 15628616 (Version 2)
Quarter: 2018Q4

REPORT INFORMATION
  Report Type: Report from Study
  Country: US (occurrence: US)
  Receive Date: 20181116
  Receipt Date: 20181212
  Transmission Date: 20190205
  Serious: Yes (Hospitalization)
  Sender: FDA-Public Use
  Company Number: PHEH2018US048136

PATIENT
  Age: 64 Year
  Sex: Female

DRUGS (3)
  1. CALCIPOTRIENE. [Concomitant]
     Active Substance: CALCIPOTRIENE
     Indication: PSORIASIS
     Dosage: 0.05% FLUOCINONIDE OINTMENT TO BE MIXED WITH CALCIPOTRIENE 0.005%, BID
     Route: 065
  2. COSENTYX [Suspect]
     Active Substance: SECUKINUMAB
     Dosage: 150 MG, QW
     Route: 058
  3. COSENTYX [Suspect]
     Active Substance: SECUKINUMAB
     Indication: PSORIASIS
     Dosage: 300 MG, QW
     Route: 058
     Dates: start: 20181008

REACTIONS (16)
  - Pickwickian syndrome [Unknown]
  - Asthma [Unknown]
  - Arthralgia [Unknown]
  - Psoriasis [Recovering/Resolving]
  - Blood urea increased [Unknown]
  - Platelet count decreased [Unknown]
  - Carbon dioxide increased [Unknown]
  - Blood chloride decreased [Unknown]
  - Cardiac failure congestive [Unknown]
  - Rosacea [Unknown]
  - Rash erythematous [Recovering/Resolving]
  - Haematocrit increased [Unknown]
  - Aspartate aminotransferase increased [Unknown]
  - Blood alkaline phosphatase increased [Unknown]
  - Pneumonia [Recovered/Resolved]
  - Alanine aminotransferase increased [Unknown]

NARRATIVE: CASE EVENT DATE: 20181010
